FAERS Safety Report 22330572 (Version 1)
Quarter: 2023Q2

REPORT INFORMATION
  Report Type: Spontaneous
  Country: US (occurrence: None)
  Receive Date: 20230517
  Receipt Date: 20230517
  Transmission Date: 20230722
  Serious: No
  Sender: FDA-Public Use
  Company Number: US-ROCHE-3087951

PATIENT
  Sex: Female

DRUGS (2)
  1. ACTEMRA [Suspect]
     Active Substance: TOCILIZUMAB
     Indication: Product used for unknown indication
     Dosage: 162 MG/ 0.9 ML, QUANTITY FOUR , 0.9MI SYRINGE
     Route: 058
  2. OCREVUS [Suspect]
     Active Substance: OCRELIZUMAB
     Indication: Relapsing-remitting multiple sclerosis
     Dosage: SUBSEQUENT DOSE AS FOLLOWS,18/OCT/202, THEN 600 MG EVERY 6 MONTHS
     Route: 042
     Dates: start: 20210405

REACTIONS (2)
  - Off label use [Unknown]
  - No adverse event [Unknown]
